FAERS Safety Report 5114986-3 (Version None)
Quarter: 2006Q3

REPORT INFORMATION
  Report Type: 
  Country: None (occurrence: None)
  Receive Date: 20060925
  Receipt Date: 20060925
  Transmission Date: 20061208
  Serious: Yes (Hospitalization)
  Sender: FDA-Public Use
  Company Number: None

PATIENT
  Age: 13 Year
  Sex: Male
  Weight: 34.7 kg

DRUGS (9)
  1. REMODULIN [Suspect]
     Indication: PULMONARY HYPERTENSION
     Dosage: 86 NG/KG/MIN AT 4 ML/24 HRS CONTINUOUS IV DRIP
     Route: 041
     Dates: start: 20041111, end: 20051227
  2. DIGOXIN [Concomitant]
  3. LASIX [Concomitant]
  4. TRACLEAR [Concomitant]
  5. SPIRONOLACTONE [Concomitant]
  6. PLAVIX [Concomitant]
  7. SILDENAFIL [Concomitant]
  8. FLOVENT [Concomitant]
  9. OXYGEN [Concomitant]

REACTIONS (9)
  - CATHETER RELATED COMPLICATION [None]
  - CHILLS [None]
  - DIARRHOEA [None]
  - ESCHERICHIA INFECTION [None]
  - KLEBSIELLA INFECTION [None]
  - NAUSEA [None]
  - PYREXIA [None]
  - STENOTROPHOMONAS INFECTION [None]
  - VOMITING [None]
